FAERS Safety Report 10378024 (Version 9)
Quarter: 2015Q2

REPORT INFORMATION
  Report Type: Report from Study
  Country: SE (occurrence: SE)
  Receive Date: 20140812
  Receipt Date: 20150422
  Transmission Date: 20150821
  Serious: Yes (Hospitalization)
  Sender: FDA-Public Use
  Company Number: SE-BAYER-2014-110123

PATIENT
  Age: 71 Year
  Sex: Male
  Weight: 98.9 kg

DRUGS (7)
  1. MORFIN [Concomitant]
     Active Substance: MORPHINE SULFATE
     Indication: PAIN
     Dosage: 50 MG, PRN
     Route: 058
     Dates: start: 20130201, end: 20140718
  2. RADIUM-223 DICHLORIDE [Suspect]
     Active Substance: RADIUM RA-223 DICHLORIDE
     Indication: PROSTATE CANCER STAGE IV
     Dosage: 80 KBQ/KG/4 V/6 DOSES
     Route: 042
     Dates: start: 20140710, end: 20140710
  3. MORFIN [Concomitant]
     Active Substance: MORPHINE SULFATE
     Indication: PAIN
     Dosage: 20 MG, PRN
     Route: 048
     Dates: start: 20121108
  4. RADIUM-223 DICHLORIDE [Suspect]
     Active Substance: RADIUM RA-223 DICHLORIDE
     Indication: METASTASES TO BONE
     Dosage: 80 KBQ/KG
     Route: 042
     Dates: start: 20140807, end: 20140807
  5. GABAPENTIN. [Concomitant]
     Active Substance: GABAPENTIN
     Indication: PAIN
     Dosage: TOTAL DAILY DOSE 600 MG
     Route: 048
     Dates: start: 20140710
  6. XGEVA [Concomitant]
     Active Substance: DENOSUMAB
     Indication: PROPHYLAXIS
     Dosage: 120 MG/4 W
     Route: 058
     Dates: start: 20130430
  7. DUROGESIC [Concomitant]
     Active Substance: FENTANYL
     Indication: PAIN
     Dosage: 50 ?G/H PATCH
     Dates: start: 20130415

REACTIONS (1)
  - General physical health deterioration [Recovering/Resolving]

NARRATIVE: CASE EVENT DATE: 20140717
